FAERS Safety Report 15467974 (Version 1)
Quarter: 2018Q4

REPORT INFORMATION
  Report Type: Spontaneous
  Country: US (occurrence: US)
  Receive Date: 20181005
  Receipt Date: 20181005
  Transmission Date: 20190204
  Serious: No
  Sender: FDA-Public Use
  Company Number: US-SA-2018SA274513

PATIENT
  Age: 63 Year
  Sex: Female
  Weight: 107 kg

DRUGS (10)
  1. WELCHOL [Suspect]
     Active Substance: COLESEVELAM HYDROCHLORIDE
     Indication: BLOOD CHOLESTEROL INCREASED
     Dosage: 1875 MG
     Route: 048
     Dates: start: 201809
  2. WELCHOL [Suspect]
     Active Substance: COLESEVELAM HYDROCHLORIDE
     Indication: BLOOD CHOLESTEROL INCREASED
     Dosage: 3.75 G, QD
     Route: 048
     Dates: start: 201808, end: 201809
  3. SULFUR. [Concomitant]
     Active Substance: SULFUR
     Dosage: UNK
     Dates: start: 2017
  4. GABAPENTIN. [Concomitant]
     Active Substance: GABAPENTIN
     Dosage: UNK
     Dates: start: 2012
  5. LABETALOL [Concomitant]
     Active Substance: LABETALOL\LABETALOL HYDROCHLORIDE
     Dosage: UNK
     Dates: start: 2013
  6. CELECOXIB. [Concomitant]
     Active Substance: CELECOXIB
     Dosage: UNK
     Dates: start: 2013
  7. MYRBETRIQ [Concomitant]
     Active Substance: MIRABEGRON
     Dosage: UNK
     Dates: start: 2017
  8. OMEPRAZOLE. [Concomitant]
     Active Substance: OMEPRAZOLE
     Dosage: UNK
     Dates: start: 2017
  9. LEVOTHYROXINE. [Concomitant]
     Active Substance: LEVOTHYROXINE
     Dosage: UNK
     Dates: start: 2009
  10. EXEMESTANE. [Concomitant]
     Active Substance: EXEMESTANE
     Dosage: UNK
     Dates: start: 2015

REACTIONS (2)
  - Off label use [Unknown]
  - Nausea [Unknown]

NARRATIVE: CASE EVENT DATE: 201808
